FAERS Safety Report 22179594 (Version 4)
Quarter: 2023Q4

REPORT INFORMATION
  Report Type: Spontaneous
  Country: US (occurrence: US)
  Receive Date: 20230406
  Receipt Date: 20231026
  Transmission Date: 20240109
  Serious: Yes (Hospitalization, Other)
  Sender: FDA-Public Use
  Company Number: US-SA-2023SA104949

PATIENT
  Age: 72 Year
  Sex: Female

DRUGS (6)
  1. DUPIXENT [Suspect]
     Active Substance: DUPILUMAB
     Dosage: UNK
     Route: 065
     Dates: end: 2023
  2. VENCLEXTA [Suspect]
     Active Substance: VENETOCLAX
     Indication: Chronic lymphocytic leukaemia
     Dosage: 300 MG, QD
     Route: 048
     Dates: start: 202210, end: 2022
  3. VENCLEXTA [Suspect]
     Active Substance: VENETOCLAX
     Dosage: 400 MG
     Route: 048
     Dates: start: 20221226, end: 2023
  4. BRUKINSA [Suspect]
     Active Substance: ZANUBRUTINIB
     Indication: Chronic lymphocytic leukaemia
     Dosage: UNK
     Dates: start: 20221101
  5. NEULASTA [Concomitant]
     Active Substance: PEGFILGRASTIM
     Indication: Product used for unknown indication
     Dosage: UNK
     Dates: start: 2022
  6. NEUPOGEN [Concomitant]
     Active Substance: FILGRASTIM
     Indication: Product used for unknown indication
     Dosage: UNK
     Dates: start: 2022

REACTIONS (23)
  - Febrile neutropenia [Unknown]
  - Neutropenia [Unknown]
  - Immunosuppression [Unknown]
  - Cataract [Unknown]
  - Constipation [Unknown]
  - Asthenia [Unknown]
  - Dyspepsia [Not Recovered/Not Resolved]
  - Chest discomfort [Unknown]
  - Fatigue [Unknown]
  - Haemoglobin decreased [Unknown]
  - Eczema [Unknown]
  - Headache [Not Recovered/Not Resolved]
  - Platelet count decreased [Recovering/Resolving]
  - Contusion [Unknown]
  - Petechiae [Recovered/Resolved]
  - Diarrhoea [Not Recovered/Not Resolved]
  - Somnolence [Unknown]
  - Nausea [Unknown]
  - White blood cell count decreased [Unknown]
  - COVID-19 [Not Recovered/Not Resolved]
  - Fungal infection [Unknown]
  - Nasopharyngitis [Unknown]
  - Injection site erythema [Unknown]

NARRATIVE: CASE EVENT DATE: 20230514
